FAERS Safety Report 22023036 (Version 1)
Quarter: 2023Q1

REPORT INFORMATION
  Report Type: Spontaneous
  Country: GB (occurrence: GB)
  Receive Date: 20230222
  Receipt Date: 20230222
  Transmission Date: 20230417
  Serious: Yes (Other)
  Sender: FDA-Public Use
  Company Number: None

PATIENT
  Age: 91 Year
  Sex: Female
  Weight: 66 kg

DRUGS (2)
  1. SERTRALINE [Suspect]
     Active Substance: SERTRALINE HYDROCHLORIDE
     Indication: Product used for unknown indication
     Dosage: HALF ONCE DAILY FOR 2 WEEKS, THEN ONE DAILY AFTERWARDS
     Route: 048
     Dates: start: 20230106, end: 20230117
  2. INFLUENZA VIRUS VACCINE [Concomitant]
     Active Substance: INFLUENZA VIRUS VACCINE
     Indication: Influenza immunisation
     Dates: start: 20221008, end: 20221008

REACTIONS (2)
  - Urinary incontinence [Recovering/Resolving]
  - Nocturia [Unknown]

NARRATIVE: CASE EVENT DATE: 20230110
